FAERS Safety Report 24685470 (Version 1)
Quarter: 2024Q4

REPORT INFORMATION
  Report Type: Report from Study
  Country: US (occurrence: US)
  Receive Date: 20241202
  Receipt Date: 20241202
  Transmission Date: 20250115
  Serious: Yes (Hospitalization)
  Sender: CHEPLAPHARM
  Company Number: US-CHEPLA-2024014986

PATIENT
  Age: 24 Year
  Sex: Male

DRUGS (4)
  1. OLANZAPINE [Suspect]
     Active Substance: OLANZAPINE
     Indication: Agitation
     Route: 030
  2. OLANZAPINE [Suspect]
     Active Substance: OLANZAPINE
     Indication: Agitation
     Dosage: SECOND 10 MG IM OLANZAPINE 4 MINUTES LATER
     Route: 030
  3. MIDAZOLAM [Suspect]
     Active Substance: MIDAZOLAM
     Indication: Seizure like phenomena
     Route: 030
  4. ALCOHOL [Suspect]
     Active Substance: ALCOHOL

REACTIONS (3)
  - Hypoventilation [Unknown]
  - Hypoxia [Unknown]
  - Drug ineffective [Unknown]
